FAERS Safety Report 20059628 (Version 2)
Quarter: 2021Q4

REPORT INFORMATION
  Report Type: Spontaneous
  Country: US (occurrence: US)
  Receive Date: 20211111
  Receipt Date: 20211117
  Transmission Date: 20220303
  Serious: Yes (Hospitalization)
  Sender: FDA-Public Use
  Company Number: US-BAUSCH-BL-2021-037128

PATIENT
  Age: 52 Year
  Sex: Female

DRUGS (4)
  1. BUPROPION [Suspect]
     Active Substance: BUPROPION
     Indication: Product used for unknown indication
     Route: 065
  2. ETHYLENE GLYCOL [Suspect]
     Active Substance: ETHYLENE GLYCOL
     Indication: Product used for unknown indication
     Dosage: 300ML OF ANTIFREEZE 8 HOURS PRIOR TO ARRIVING TO THE ED
     Route: 065
  3. AMLODIPINE [Concomitant]
     Active Substance: AMLODIPINE BESYLATE
     Indication: Product used for unknown indication
  4. PALIPERIDONE [Concomitant]
     Active Substance: PALIPERIDONE
     Indication: Product used for unknown indication

REACTIONS (1)
  - Suicidal ideation [Recovered/Resolved]
